FAERS Safety Report 16559019 (Version 4)
Quarter: 2019Q3

REPORT INFORMATION
  Report Type: Spontaneous
  Country: US (occurrence: US)
  Receive Date: 20190711
  Receipt Date: 20190809
  Transmission Date: 20191004
  Serious: Yes (Disabling, Other)
  Sender: FDA-Public Use
  Company Number: US-PFIZER INC-2019294169

PATIENT
  Age: 67 Year
  Sex: Male
  Weight: 107 kg

DRUGS (3)
  1. CYTARABINE. [Suspect]
     Active Substance: CYTARABINE
     Indication: LYMPHOMA
     Dosage: 2 ML, UNK
     Route: 042
     Dates: start: 201903, end: 201903
  2. CYTARABINE. [Suspect]
     Active Substance: CYTARABINE
     Dosage: 200 MG, 2X/DAY
     Route: 042
     Dates: start: 2019, end: 2019
  3. METHOTREXATE SODIUM. [Concomitant]
     Active Substance: METHOTREXATE SODIUM
     Dosage: UNK

REACTIONS (7)
  - Muscular weakness [Unknown]
  - Prescribed overdose [Unknown]
  - Visual impairment [Not Recovered/Not Resolved]
  - Neurotoxicity [Unknown]
  - Gait disturbance [Unknown]
  - Dizziness [Not Recovered/Not Resolved]
  - Fatigue [Not Recovered/Not Resolved]

NARRATIVE: CASE EVENT DATE: 201903
